FAERS Safety Report 5743666-6 (Version None)
Quarter: 2008Q2

REPORT INFORMATION
  Report Type: 
  Country: None (occurrence: None)
  Receive Date: 20080516
  Receipt Date: 20080417
  Transmission Date: 20081010
  Serious: Yes (Other)
  Sender: FDA-Public Use
  Company Number: 2008VX000933

PATIENT
  Age: 55 Year
  Sex: Female

DRUGS (1)
  1. EFUDEX [Suspect]
     Indication: ACTINIC KERATOSIS
     Dosage: ;BID;TOP
     Route: 061
     Dates: start: 20080211, end: 20080414

REACTIONS (14)
  - APPLICATION SITE ERYTHEMA [None]
  - DEPRESSION [None]
  - EPISTAXIS [None]
  - ERYTHEMA [None]
  - EYE IRRITATION [None]
  - EYE PRURITUS [None]
  - HAEMORRHAGE [None]
  - PAIN OF SKIN [None]
  - PRURITUS [None]
  - PURULENCE [None]
  - SCAB [None]
  - SKIN DISORDER [None]
  - SKIN EROSION [None]
  - SKIN WRINKLING [None]
